FAERS Safety Report 16340231 (Version 3)
Quarter: 2019Q3

REPORT INFORMATION
  Report Type: Spontaneous
  Country: AR (occurrence: AR)
  Receive Date: 20190522
  Receipt Date: 20190709
  Transmission Date: 20191004
  Serious: Yes (Other)
  Sender: FDA-Public Use
  Company Number: AR-AMGEN-ARGSP2019079773

PATIENT
  Age: 50 Year
  Sex: Female

DRUGS (1)
  1. ENBREL [Suspect]
     Active Substance: ETANERCEPT
     Indication: RHEUMATOID ARTHRITIS
     Dosage: 50 MILLIGRAM, QWK
     Route: 065
     Dates: start: 20180123

REACTIONS (3)
  - Movement disorder [Unknown]
  - Gait disturbance [Not Recovered/Not Resolved]
  - Fall [Unknown]

NARRATIVE: CASE EVENT DATE: 201811
